FAERS Safety Report 4965353-4 (Version None)
Quarter: 2006Q2

REPORT INFORMATION
  Report Type: 
  Country: None (occurrence: None)
  Receive Date: 20060406
  Receipt Date: 20060330
  Transmission Date: 20061013
  Serious: Yes (Disabling)
  Sender: FDA-Public Use
  Company Number: NL-MERCK-0604USA00124

PATIENT
  Age: 52 Year
  Sex: Female

DRUGS (1)
  1. DECADRON [Suspect]
     Indication: MULTIPLE SCLEROSIS
     Route: 048

REACTIONS (1)
  - MULTIPLE SCLEROSIS [None]
